FAERS Safety Report 4742075-6 (Version None)
Quarter: 2005Q3

REPORT INFORMATION
  Report Type: 
  Country: None (occurrence: None)
  Receive Date: 20050810
  Receipt Date: 20050810
  Transmission Date: 20060218
  Serious: Yes (Hospitalization)
  Sender: FDA-Public Use
  Company Number: None

PATIENT
  Age: 62 Year
  Sex: Male
  Weight: 140.2 kg

DRUGS (13)
  1. CIPROFLOXACIN [Suspect]
  2. CLINDAMYCIN HCL [Suspect]
  3. CEFTAZIDE [Suspect]
     Dosage: 3 GM IV
     Route: 042
     Dates: start: 20050422, end: 20050424
  4. IBUPROFEN [Concomitant]
  5. KETOROLAC TROMETH [Concomitant]
  6. FLUROSEMIDE [Concomitant]
  7. PREDNISON [Concomitant]
  8. DIPHENHYDRAMINE HCL [Concomitant]
  9. RANITIDINE [Concomitant]
  10. LISINOPRIL [Concomitant]
  11. LOVASTATIN [Concomitant]
  12. POTASSIUM CHLORIDE [Concomitant]
  13. TRAMADOL HCL [Concomitant]

REACTIONS (1)
  - RASH GENERALISED [None]
